FAERS Safety Report 20868734 (Version 2)
Quarter: 2022Q2

REPORT INFORMATION
  Report Type: Spontaneous
  Country: CH (occurrence: CH)
  Receive Date: 20220524
  Receipt Date: 20220527
  Transmission Date: 20220720
  Serious: Yes (Other)
  Sender: FDA-Public Use
  Company Number: CH-ELI_LILLY_AND_COMPANY-CH202205006163

PATIENT
  Age: 64 Year
  Sex: Female
  Weight: 89 kg

DRUGS (3)
  1. OLUMIANT [Suspect]
     Active Substance: BARICITINIB
     Indication: Rheumatoid arthritis
     Dosage: 2 MG, UNKNOWN
     Route: 048
     Dates: start: 20190916
  2. PREDNISOLONE [Concomitant]
     Active Substance: PREDNISOLONE
     Indication: Rheumatoid arthritis
  3. VALSARTAN [Concomitant]
     Active Substance: VALSARTAN
     Indication: Hypertension

REACTIONS (1)
  - Deep vein thrombosis [Unknown]
